FAERS Safety Report 9802806 (Version 2)
Quarter: 2014Q1

REPORT INFORMATION
  Report Type: Spontaneous
  Country: US (occurrence: None)
  Receive Date: 20131231
  Receipt Date: 20140131
  Transmission Date: 20141002
  Serious: Yes (Death, Other)
  Sender: FDA-Public Use
  Company Number: SYM-2013-14440

PATIENT
  Age: 49 Year
  Sex: Female

DRUGS (3)
  1. XENAZINE [Suspect]
     Indication: HUNTINGTON^S DISEASE
     Dates: start: 20131127
  2. MORPHINE [Concomitant]
  3. EPILEPSY MEDICATION [Concomitant]

REACTIONS (4)
  - Fall [None]
  - Head injury [None]
  - Chorea [None]
  - Disease recurrence [None]
